FAERS Safety Report 8819764 (Version 1)
Quarter: 2012Q4

REPORT INFORMATION
  Report Type: 
  Country: US (occurrence: US)
  Receive Date: 20121001
  Receipt Date: 20121001
  Transmission Date: 20130627
  Serious: Yes (Other)
  Sender: FDA-Public Use
  Company Number: US-ROCHE-1124275

PATIENT
  Sex: Female

DRUGS (9)
  1. HERCEPTIN [Suspect]
     Indication: BREAST CANCER
     Route: 042
  2. HERCEPTIN [Suspect]
     Indication: METASTASES TO LIVER
     Route: 065
  3. FEMARA [Concomitant]
     Route: 065
  4. VERAPAMIL [Concomitant]
  5. ALDACTONE [Concomitant]
  6. GLYBURIDE [Concomitant]
  7. GLUCOPHAGE [Concomitant]
  8. AMARYL [Concomitant]
  9. TAXOL [Concomitant]
     Route: 065

REACTIONS (9)
  - Muscular weakness [Unknown]
  - Neuropathy peripheral [Unknown]
  - Periarthritis [Unknown]
  - Diabetic neuropathy [Unknown]
  - Diarrhoea [Unknown]
  - Cellulitis [Unknown]
  - Abdominal pain upper [Recovered/Resolved]
  - Tenderness [Recovered/Resolved]
  - Infection [Unknown]
